FAERS Safety Report 23468515 (Version 1)
Quarter: 2024Q1

REPORT INFORMATION
  Report Type: Spontaneous
  Country: CH (occurrence: CH)
  Receive Date: 20240202
  Receipt Date: 20240202
  Transmission Date: 20240410
  Serious: Yes (Other)
  Sender: FDA-Public Use
  Company Number: None

PATIENT

DRUGS (4)
  1. WELLBUTRIN XL [Suspect]
     Active Substance: BUPROPION HYDROCHLORIDE
     Indication: Anxiety disorder
     Dosage: 150 MG, QD
     Route: 064
     Dates: end: 202311
  2. LYRICA [Suspect]
     Active Substance: PREGABALIN
     Indication: Anxiety disorder
     Dosage: 150 MG, BID
     Route: 064
     Dates: start: 20230101, end: 20230920
  3. LORAZEPAM [Suspect]
     Active Substance: LORAZEPAM
     Indication: Anxiety disorder
     Dosage: 0.5 MG, QD
     Route: 064
  4. MELATONIN [Suspect]
     Active Substance: MELATONIN
     Indication: Anxiety disorder
     Dosage: 3 MG, QD
     Route: 064

REACTIONS (2)
  - Abortion spontaneous [Recovered/Resolved]
  - Foetal exposure during pregnancy [Recovered/Resolved]

NARRATIVE: CASE EVENT DATE: 20230806
